FAERS Safety Report 9771763 (Version 2)
Quarter: 2014Q1

REPORT INFORMATION
  Report Type: Spontaneous
  Country: AR (occurrence: AR)
  Receive Date: 20131219
  Receipt Date: 20140207
  Transmission Date: 20141002
  Serious: Yes (Hospitalization)
  Sender: FDA-Public Use
  Company Number: AR-AMGEN-ARGSP2013089181

PATIENT
  Age: 58 Year
  Sex: Female

DRUGS (5)
  1. ENBREL [Suspect]
     Indication: RHEUMATOID ARTHRITIS
     Dosage: 50 MG, WEEKLY
     Route: 065
     Dates: start: 20090916
  2. LANICOR [Concomitant]
     Indication: CARDIAC FAILURE
     Dosage: 0.25 MG, 1X/DAY
  3. ATLANSIL                           /00133101/ [Concomitant]
     Indication: CARDIAC FAILURE
     Dosage: UKN
  4. TAFIROL                            /00020001/ [Concomitant]
     Indication: BONE PAIN
     Dosage: 2 UNK, 2X/DAY
  5. OMEPRAZOL                          /00661201/ [Concomitant]
     Dosage: UNK

REACTIONS (2)
  - Cerebrovascular accident [Recovered/Resolved]
  - Coagulopathy [Recovering/Resolving]
